FAERS Safety Report 6054714-0 (Version None)
Quarter: 2009Q1

REPORT INFORMATION
  Report Type: 
  Country: None (occurrence: None)
  Receive Date: 20090128
  Receipt Date: 20090122
  Transmission Date: 20090719
  Serious: Yes (Hospitalization)
  Sender: FDA-Public Use
  Company Number: US-BRISTOL-MYERS SQUIBB COMPANY-14480362

PATIENT
  Age: 58 Year
  Sex: Female

DRUGS (11)
  1. IXEMPRA KIT [Suspect]
     Indication: BREAST CANCER METASTATIC
  2. ATENOLOL [Concomitant]
  3. LEVOTHYROXINE SODIUM [Concomitant]
  4. CYTOMEL [Concomitant]
  5. LEXAPRO [Concomitant]
  6. MORPHINE [Concomitant]
  7. DIGOXIN [Concomitant]
  8. XANAX [Concomitant]
  9. VITAMIN D [Concomitant]
  10. VITAMIN B6 [Concomitant]
  11. DOCUSATE [Concomitant]

REACTIONS (1)
  - HYPOGLYCAEMIA [None]
